FAERS Safety Report 21576875 (Version 1)
Quarter: 2022Q4

REPORT INFORMATION
  Report Type: Spontaneous
  Country: CA (occurrence: CA)
  Receive Date: 20221110
  Receipt Date: 20221110
  Transmission Date: 20230113
  Serious: Yes (Other)
  Sender: FDA-Public Use
  Company Number: None

PATIENT
  Age: 69 Year
  Sex: Female
  Weight: 64 kg

DRUGS (7)
  1. METHOTREXATE [Suspect]
     Active Substance: METHOTREXATE
     Indication: Product used for unknown indication
     Route: 065
  2. DETROL [Concomitant]
     Active Substance: TOLTERODINE TARTRATE
  3. IBUPROFEN [Concomitant]
     Active Substance: IBUPROFEN
  4. MAGNESIUM [Concomitant]
     Active Substance: MAGNESIUM
  5. METAMUCIL [Concomitant]
     Active Substance: PLANTAGO SEED
  6. PREDNISONE [Concomitant]
     Active Substance: PREDNISONE
  7. VITAMIN D [Concomitant]
     Active Substance: VITAMIN D NOS

REACTIONS (1)
  - Basal cell carcinoma [Unknown]
